FAERS Safety Report 25260635 (Version 2)
Quarter: 2025Q2

REPORT INFORMATION
  Report Type: Spontaneous
  Country: JP (occurrence: JP)
  Receive Date: 20250501
  Receipt Date: 20250510
  Transmission Date: 20250716
  Serious: Yes (Hospitalization, Other)
  Sender: NOVO NORDISK
  Company Number: JP-NOVOPROD-1408918

PATIENT
  Age: 52 Year
  Sex: Male
  Weight: 85.4 kg

DRUGS (1)
  1. RYZODEG 70/30 [Suspect]
     Active Substance: INSULIN ASPART\INSULIN DEGLUDEC
     Indication: Suicide attempt
     Dosage: 300 IU, QD
     Route: 058
     Dates: start: 20240110, end: 20240110

REACTIONS (6)
  - Suicide attempt [Unknown]
  - Hypoglycaemia [Recovering/Resolving]
  - Overdose [Unknown]
  - Prescription drug used without a prescription [Unknown]
  - Product use in unapproved indication [Recovered/Resolved]
  - Blood potassium decreased [Recovering/Resolving]

NARRATIVE: CASE EVENT DATE: 20240110
